FAERS Safety Report 17831068 (Version 1)
Quarter: 2020Q2

REPORT INFORMATION
  Report Type: Spontaneous
  Country: CN (occurrence: CN)
  Receive Date: 20200527
  Receipt Date: 20200527
  Transmission Date: 20200714
  Serious: Yes (Life-Threatening, Hospitalization)
  Sender: FDA-Public Use
  Company Number: CN-PFIZER INC-2020207987

PATIENT
  Age: 71 Year
  Sex: Male
  Weight: 60 kg

DRUGS (2)
  1. LIPITOR [Suspect]
     Active Substance: ATORVASTATIN CALCIUM
     Indication: CEREBRAL HAEMORRHAGE
     Dosage: 20 MG, 1X/DAY
     Route: 048
     Dates: start: 20200301, end: 20200424
  2. CAFFEIC ACID TABLETS [Concomitant]
     Indication: CEREBRAL HAEMORRHAGE
     Dosage: 0.1 G, 3X/DAY
     Route: 048
     Dates: start: 20200301, end: 20200424

REACTIONS (2)
  - Oliguria [Recovering/Resolving]
  - Rhabdomyolysis [Recovering/Resolving]

NARRATIVE: CASE EVENT DATE: 20200418
